FAERS Safety Report 24209805 (Version 1)
Quarter: 2024Q3

REPORT INFORMATION
  Report Type: Spontaneous
  Country: US (occurrence: None)
  Receive Date: 20240813
  Receipt Date: 20240813
  Transmission Date: 20241016
  Serious: Yes (Disabling)
  Sender: Public
  Company Number: None

PATIENT
  Age: 31 Year
  Sex: Male
  Weight: 90 kg

DRUGS (3)
  1. GABAPENTIN [Suspect]
     Active Substance: GABAPENTIN
     Indication: Neuralgia
     Dosage: OTHER QUANTITY : 1 CAPSULE(S);?FREQUENCY : 3 TIMES A DAY;?
     Route: 048
     Dates: start: 20240613, end: 20240707
  2. GABAPENTIN [Suspect]
     Active Substance: GABAPENTIN
     Indication: Procedural pain
  3. MAGNESIUM [Concomitant]
     Active Substance: MAGNESIUM

REACTIONS (11)
  - Heart rate increased [None]
  - Palpitations [None]
  - Insomnia [None]
  - Decreased appetite [None]
  - Tremor [None]
  - Tremor [None]
  - Tension [None]
  - Disturbance in attention [None]
  - Vision blurred [None]
  - Chills [None]
  - Product communication issue [None]

NARRATIVE: CASE EVENT DATE: 20240707
